FAERS Safety Report 5631786-6 (Version None)
Quarter: 2008Q1

REPORT INFORMATION
  Report Type: 
  Country: None (occurrence: None)
  Receive Date: 20080219
  Receipt Date: 20080219
  Transmission Date: 20080703
  Serious: No
  Sender: FDA-Public Use
  Company Number: None

PATIENT
  Sex: Female

DRUGS (2)
  1. PERCOCET [Suspect]
     Indication: CERVICOBRACHIAL SYNDROME
     Dosage: 5/325MG ONE Q 4 HOURS PRN PO
     Route: 048
     Dates: start: 20050101
  2. PERCOCET [Suspect]
     Indication: MUSCULOSKELETAL PAIN
     Dosage: 5/325MG ONE Q 4 HOURS PRN PO
     Route: 048
     Dates: start: 20050101

REACTIONS (3)
  - DRUG INEFFECTIVE [None]
  - PHARMACEUTICAL PRODUCT COMPLAINT [None]
  - STOMACH DISCOMFORT [None]
